FAERS Safety Report 10052264 (Version 1)
Quarter: 2014Q2

REPORT INFORMATION
  Report Type: Spontaneous
  Country: NO (occurrence: NO)
  Receive Date: 20140402
  Receipt Date: 20140402
  Transmission Date: 20141212
  Serious: Yes (Life-Threatening, Hospitalization)
  Sender: FDA-Public Use
  Company Number: NO-AMGEN-NORSP2014021235

PATIENT
  Age: 36 Year
  Sex: Male

DRUGS (1)
  1. NEUPOGEN [Suspect]
     Indication: HAEMATOPOIETIC STEM CELL MOBILISATION
     Dosage: COURSE LASTING FOR FIVE DAYS
     Route: 058
     Dates: start: 201312, end: 201312

REACTIONS (2)
  - Lymphadenopathy [Not Recovered/Not Resolved]
  - Testicular seminoma (pure) [Not Recovered/Not Resolved]
